FAERS Safety Report 26107990 (Version 1)
Quarter: 2025Q4

REPORT INFORMATION
  Report Type: Spontaneous
  Country: US (occurrence: None)
  Receive Date: 20251201
  Receipt Date: 20251201
  Transmission Date: 20260118
  Serious: Yes (Hospitalization)
  Sender: FDA-CTU
  Company Number: None

PATIENT
  Sex: Male

DRUGS (2)
  1. JAYPIRCA [Suspect]
     Active Substance: PIRTOBRUTINIB
     Indication: Chronic lymphocytic leukaemia
     Dosage: FREQUENCY : DAILY;?
     Route: 048
     Dates: start: 20250421
  2. PREDNISONE [Suspect]
     Active Substance: PREDNISONE

REACTIONS (10)
  - Infection [None]
  - Pneumonia [None]
  - Drug interaction [None]
  - Therapy interrupted [None]
  - Acne [None]
  - Constipation [None]
  - Diarrhoea [None]
  - Nausea [None]
  - Emotional disorder [None]
  - Pain [None]
